FAERS Safety Report 23626506 (Version 2)
Quarter: 2024Q1

REPORT INFORMATION
  Report Type: Other
  Country: US (occurrence: None)
  Receive Date: 20240313
  Receipt Date: 20240315
  Transmission Date: 20240410
  Serious: Yes (Death)
  Sender: FDA-Public Use
  Company Number: US-ROCHE-3520074

PATIENT
  Age: 81 Year
  Sex: Male

DRUGS (8)
  1. RITUXAN [Suspect]
     Active Substance: RITUXIMAB
     Indication: Polymyositis
     Dosage: ANTICIPATED DATE OF TREATMENT REPORTED ON 29/FEB/2023.?INFUSE RITUXIMAB 1000 MG IV DAY 1 AND DAY 15,
     Route: 042
  2. RITUXAN [Suspect]
     Active Substance: RITUXIMAB
     Indication: Myopathy
  3. ALENDRONATE [Concomitant]
     Active Substance: ALENDRONATE SODIUM
  4. DONEPEZIL HYDROCHLORIDE [Concomitant]
     Active Substance: DONEPEZIL HYDROCHLORIDE
  5. FOLIC ACID [Concomitant]
     Active Substance: FOLIC ACID
  6. LEVOTHYROXINE [Concomitant]
     Active Substance: LEVOTHYROXINE\LEVOTHYROXINE SODIUM
  7. METHOTREXATE [Concomitant]
     Active Substance: METHOTREXATE
  8. VITAMIN D3 [Concomitant]
     Active Substance: CHOLECALCIFEROL

REACTIONS (3)
  - Pneumonia [Fatal]
  - Off label use [Unknown]
  - Chronic obstructive pulmonary disease [Fatal]
